FAERS Safety Report 24696200 (Version 1)
Quarter: 2024Q4

REPORT INFORMATION
  Report Type: Spontaneous
  Country: US (occurrence: US)
  Receive Date: 20241204
  Receipt Date: 20241204
  Transmission Date: 20250114
  Serious: No
  Sender: JIANGSU HENGRUI MEDICINE CO., LTD.
  Company Number: US-Jiangsu Hengrui Medicine Co., Ltd.-2166447

PATIENT
  Age: 69 Year
  Sex: Female
  Weight: 58.503 kg

DRUGS (7)
  1. GADOBUTROL [Suspect]
     Active Substance: GADOBUTROL
     Indication: Magnetic resonance imaging neck
     Dates: start: 20241029, end: 20241029
  2. BUDESONIDE [Concomitant]
     Active Substance: BUDESONIDE
  3. COZAAR [Concomitant]
     Active Substance: LOSARTAN POTASSIUM
  4. LIPITOR [Concomitant]
     Active Substance: ATORVASTATIN CALCIUM
  5. ALBUTEROL SULFATE [Concomitant]
     Active Substance: ALBUTEROL SULFATE
  6. FLUTICASONE PROPIONATE [Concomitant]
     Active Substance: FLUTICASONE PROPIONATE
  7. HYGROTON [Concomitant]
     Active Substance: CHLORTHALIDONE

REACTIONS (2)
  - Pruritus [Recovered/Resolved]
  - Dizziness [Recovered/Resolved]

NARRATIVE: CASE EVENT DATE: 20241029
